FAERS Safety Report 6318095-7 (Version None)
Quarter: 2009Q3

REPORT INFORMATION
  Report Type: 
  Country: None (occurrence: None)
  Receive Date: 20090821
  Receipt Date: 20090810
  Transmission Date: 20100115
  Serious: Yes (Death)
  Sender: FDA-Public Use
  Company Number: DE-ROCHE-589008

PATIENT
  Sex: Female

DRUGS (11)
  1. MYCOPHENOLATE MOFETIL [Suspect]
     Dosage: 'TWO DOSE IN MORNING AND IN NIGHT'.
     Route: 048
  2. SANDIMMUNE [Concomitant]
     Indication: IMMUNOSUPPRESSION
     Dosage: ONE DOSE TAKEN IN MORNING AND IN NIGHT.
     Route: 048
     Dates: start: 20080401
  3. URSO FALK [Concomitant]
     Indication: CHOLESTASIS
     Dosage: ONE DOSE TAKEN IN MORNING, NOON, EVENING AND NIGHT.
     Route: 048
  4. PANTOZOL [Concomitant]
     Indication: GASTRITIS
     Dosage: ONE DOSE TAKEN IN MORNING.
     Route: 048
  5. VALCYTE [Concomitant]
     Dosage: TWO DOSE TAKEN IN MORNING AND IN NIGHT.
     Route: 048
  6. IDEOS [Concomitant]
     Indication: OSTEOPOROSIS
     Dosage: ONE DOSE TAKEN IN MORNING AND IN NIGHT. FORM: SOFT TABS.
     Route: 048
  7. KALINOR RETARD [Concomitant]
     Dosage: ONE DOSE TAKEN IN MORNING.
     Route: 048
  8. CYMBALTA [Concomitant]
     Indication: DEPRESSION
     Dosage: ONE DOSE TAKEN IN MORNING.
     Route: 048
  9. ALLOPURINOL [Concomitant]
     Dosage: ONE DOSE TAKEN IN NIGHT.
     Route: 048
  10. AMLODIPINE [Concomitant]
     Dosage: ONE DOSE TAKEN IN MORNING.
     Route: 048
  11. METOHEXAL SUCC [Concomitant]
     Dosage: ONE DOSE TAKEN IN MORNING.
     Route: 048

REACTIONS (3)
  - MULTI-ORGAN FAILURE [None]
  - NECROTISING FASCIITIS [None]
  - SEPTIC SHOCK [None]
